FAERS Safety Report 8159552-0 (Version None)
Quarter: 2012Q1

REPORT INFORMATION
  Report Type: 
  Country: None (occurrence: None)
  Receive Date: 20120223
  Receipt Date: 20120215
  Transmission Date: 20120608
  Serious: Yes (Hospitalization)
  Sender: FDA-Public Use
  Company Number: US-ROCHE-1040358

PATIENT
  Age: 63 Year
  Sex: Female
  Weight: 93.6 kg

DRUGS (3)
  1. CARBOPLATIN [Suspect]
     Indication: OVARIAN EPITHELIAL CANCER
     Route: 042
     Dates: start: 20110829
  2. AVASTIN [Suspect]
     Indication: OVARIAN EPITHELIAL CANCER
     Route: 042
     Dates: start: 20110829
  3. PACLITAXEL [Suspect]
     Indication: OVARIAN EPITHELIAL CANCER
     Route: 042
     Dates: start: 20110829

REACTIONS (4)
  - EMBOLISM [None]
  - THROMBOTIC THROMBOCYTOPENIC PURPURA [None]
  - ANAEMIA [None]
  - DEHYDRATION [None]
